FAERS Safety Report 9331597 (Version 1)
Quarter: 2013Q2

REPORT INFORMATION
  Report Type: Spontaneous
  Country: US (occurrence: US)
  Receive Date: 20130605
  Receipt Date: 20130605
  Transmission Date: 20140414
  Serious: No
  Sender: FDA-Public Use
  Company Number: US-ASTRAZENECA-2013SE37355

PATIENT
  Age: 56 Year
  Sex: Female

DRUGS (22)
  1. SYMBICORT [Suspect]
     Dosage: 160/4.5 MCG, 2 PUFFS INTO LUNGS, TWO TIMES DAILY, AS NEEDED
     Route: 055
  2. NEXIUM [Suspect]
     Route: 048
  3. PRILOSEC [Suspect]
     Route: 048
  4. ACCUPRIL [Concomitant]
     Route: 048
  5. PROVENTIL HFA [Concomitant]
     Indication: WHEEZING
     Dosage: 90MCG/ACULATION, INHALE 2 PUFFS INTO LUNGS EVERY SIX HOURS AS NEEDED
     Route: 055
  6. VENTOLIN HFA [Concomitant]
     Indication: WHEEZING
     Dosage: 90MCG/ACULATION, INHALE 2 PUFFS INTO LUNGS EVERY SIX HOURS AS NEEDED
     Route: 055
  7. ALBUTEROL [Concomitant]
     Indication: WHEEZING
     Dosage: 2.5MG/3ML (0.083%) NEBULIZE SOLUTION, 3MLS EVERY 4 HRS AS NEEDED
  8. ALBUTEROL [Concomitant]
     Indication: DYSPNOEA
     Dosage: 2.5MG/3ML (0.083%) NEBULIZE SOLUTION, 3MLS EVERY 4 HRS AS NEEDED
  9. NORVASC [Concomitant]
     Route: 048
  10. TESSALON [Concomitant]
     Indication: COUGH
     Dosage: 1 CAPSULE BY MOUTH THREE TIMES DAILY AS NEEDED
     Route: 048
  11. BENZONATATE [Concomitant]
     Dosage: 3 TIMES DAILY AS NEEDED
     Route: 048
  12. BUSPAR [Concomitant]
     Route: 048
  13. PLAVIX [Concomitant]
     Route: 048
  14. VITAMIN B12 [Concomitant]
     Route: 060
  15. DALIRESP [Concomitant]
     Route: 048
  16. SYNTHROID [Concomitant]
     Route: 048
  17. LIPITOR [Concomitant]
     Route: 048
  18. NITROSTAT [Concomitant]
     Indication: CHEST PAIN
     Dosage: 1 TABLET, EVERY 5 MINUTES AS NEEDED
     Route: 060
  19. PROTONIX [Concomitant]
     Route: 048
  20. METAMUCIL [Concomitant]
     Route: 048
  21. SPIRIVA [Concomitant]
     Dosage: PLACE 1 CAPSULE IN DEVICE AND INHALE NIGHTLY
     Route: 055
  22. VITAMIN D3 [Concomitant]
     Route: 048

REACTIONS (18)
  - Vitamin B12 deficiency [Unknown]
  - Vitamin D deficiency [Unknown]
  - Blood cholesterol increased [Unknown]
  - Essential hypertension [Unknown]
  - Hypothyroidism [Unknown]
  - Chronic obstructive pulmonary disease [Unknown]
  - Abdominal pain [Unknown]
  - Tobacco user [Unknown]
  - Coronary artery disease [Unknown]
  - Gastrooesophageal reflux disease [Unknown]
  - Anxiety disorder [Unknown]
  - Vomiting [Unknown]
  - Diarrhoea [Unknown]
  - Wheezing [Unknown]
  - Dyspnoea [Unknown]
  - Cough [Unknown]
  - Chest pain [Unknown]
  - Nausea [Unknown]
